FAERS Safety Report 10429328 (Version 1)
Quarter: 2014Q3

REPORT INFORMATION
  Report Type: Spontaneous
  Country: US (occurrence: None)
  Receive Date: 20140902
  Receipt Date: 20140902
  Transmission Date: 20150326
  Serious: Yes (Hospitalization)
  Sender: FDA-Public Use
  Company Number: None

PATIENT
  Age: 49 Year
  Sex: Male

DRUGS (19)
  1. CLONIDINE. [Concomitant]
     Active Substance: CLONIDINE
  2. DOFERTILIDE [Concomitant]
  3. HYDRALAZINE [Concomitant]
     Active Substance: HYDRALAZINE HYDROCHLORIDE
  4. MAGNESIUM SULFATE [Concomitant]
     Active Substance: MAGNESIUM SULFATE
  5. SIMVASTATIN. [Concomitant]
     Active Substance: SIMVASTATIN
  6. WARFARIN [Suspect]
     Active Substance: WARFARIN
     Indication: ATRIAL FIBRILLATION
     Route: 048
     Dates: start: 20140711
  7. CARVEDILOL. [Concomitant]
     Active Substance: CARVEDILOL
  8. LORAZPEMA [Concomitant]
  9. INSULIN ASPART [Concomitant]
     Active Substance: INSULIN ASPART
  10. FOLIC ACID. [Concomitant]
     Active Substance: FOLIC ACID
  11. MAGNESIUM OXIDE. [Concomitant]
     Active Substance: MAGNESIUM OXIDE
  12. MORPHINE [Concomitant]
     Active Substance: MORPHINE
  13. BACLOFEN. [Concomitant]
     Active Substance: BACLOFEN
  14. BACLOFEN. [Concomitant]
     Active Substance: BACLOFEN
  15. POTASSIUM CHLORIDE. [Concomitant]
     Active Substance: POTASSIUM CHLORIDE
  16. THIAMINE [Concomitant]
     Active Substance: THIAMINE
  17. LISINOPRIL. [Concomitant]
     Active Substance: LISINOPRIL
  18. CARVEDILOL. [Concomitant]
     Active Substance: CARVEDILOL
  19. PANTOPRAZOLE [Concomitant]
     Active Substance: PANTOPRAZOLE SODIUM

REACTIONS (1)
  - International normalised ratio increased [None]

NARRATIVE: CASE EVENT DATE: 20140712
